FAERS Safety Report 22211213 (Version 1)
Quarter: 2023Q2

REPORT INFORMATION
  Report Type: Spontaneous
  Country: US (occurrence: US)
  Receive Date: 20230414
  Receipt Date: 20230414
  Transmission Date: 20230721
  Serious: No
  Sender: FDA-Public Use
  Company Number: US-JNJFOC-20190728120

PATIENT
  Sex: Male
  Weight: 113.50 kg

DRUGS (1)
  1. IMODIUM [Suspect]
     Active Substance: LOPERAMIDE HYDROCHLORIDE
     Indication: Diarrhoea
     Dosage: %FREQUENCY%
     Route: 065

REACTIONS (2)
  - Constipation [Unknown]
  - Flatulence [Unknown]
